FAERS Safety Report 6652467-6 (Version None)
Quarter: 2010Q1

REPORT INFORMATION
  Report Type: 
  Country: None (occurrence: None)
  Receive Date: 20100323
  Receipt Date: 20100315
  Transmission Date: 20100710
  Serious: Yes (Death, Hospitalization)
  Sender: FDA-Public Use
  Company Number: 536928

PATIENT
  Age: 60 Year
  Sex: Female

DRUGS (9)
  1. OXALIPLATIN [Suspect]
     Indication: COLORECTAL CANCER
     Dosage: INTRAVENOUS DRIP
     Route: 041
     Dates: start: 20090821, end: 20090821
  2. OXALIPLATIN [Suspect]
     Indication: COLORECTAL CANCER
     Dosage: INTRAVENOUS DRIP
     Route: 041
     Dates: start: 20091016, end: 20091016
  3. CAPECITABINE [Suspect]
     Indication: COLORECTAL CANCER
     Dosage: ORAL
     Route: 048
     Dates: start: 20090821
  4. CAPECITABINE [Suspect]
     Indication: COLORECTAL CANCER
     Dosage: ORAL
     Route: 048
     Dates: start: 20091016
  5. ADCAL-D3 [Concomitant]
  6. AMLODIPINE [Concomitant]
  7. AMOXICILLIN [Concomitant]
  8. ASPIRIN [Concomitant]
  9. SIMVASTATIN [Concomitant]

REACTIONS (4)
  - FEMORAL ARTERY EMBOLISM [None]
  - PERIPHERAL ISCHAEMIA [None]
  - PULMONARY EMBOLISM [None]
  - UROSEPSIS [None]
